FAERS Safety Report 5174610-0 (Version None)
Quarter: 2006Q4

REPORT INFORMATION
  Report Type: 
  Country: None (occurrence: None)
  Receive Date: 20061206
  Receipt Date: 20061123
  Transmission Date: 20070319
  Serious: Yes (Hospitalization, Disabling)
  Sender: FDA-Public Use
  Company Number: HQWYE420407SEP06

PATIENT
  Age: 56 Year
  Sex: Male

DRUGS (11)
  1. PANTOPRAZOLE SODIUM [Suspect]
     Indication: GASTRIC PH DECREASED
     Dosage: 40 MG 1X PER 1 DAY ORAL
     Route: 048
     Dates: start: 20021101, end: 20050101
  2. PANTOPRAZOLE SODIUM [Suspect]
     Indication: GASTROOESOPHAGEAL REFLUX DISEASE
     Dosage: 40 MG 1X PER 1 DAY ORAL
     Route: 048
     Dates: start: 20021101, end: 20050101
  3. PANTOPRAZOLE SODIUM [Suspect]
     Indication: REFLUX OESOPHAGITIS
     Dosage: 40 MG 1X PER 1 DAY ORAL
     Route: 048
     Dates: start: 20021101, end: 20050101
  4. DIOVAN HCT [Concomitant]
  5. ALLOPURINOL [Concomitant]
  6. ATENOLOL [Concomitant]
  7. ATORVASTATIN CALCIUM [Concomitant]
  8. ASPIRIN [Concomitant]
  9. NEOTRI (TRIAMTERENE/XIPAMIDE) [Concomitant]
  10. PRES (ENALAPRIL MALEATE) [Concomitant]
  11. TENORMIN [Concomitant]

REACTIONS (16)
  - ACUTE RESPIRATORY FAILURE [None]
  - ARTERIAL HAEMORRHAGE [None]
  - CONDITION AGGRAVATED [None]
  - FISTULA [None]
  - GASTRIC PH DECREASED [None]
  - GASTRIC POLYPS [None]
  - GASTRITIS [None]
  - GASTROOESOPHAGEAL REFLUX DISEASE [None]
  - NEUROENDOCRINE CARCINOMA [None]
  - PANCREATITIS ACUTE [None]
  - PANCREATITIS NECROTISING [None]
  - PERITONITIS [None]
  - PLEURAL EFFUSION [None]
  - POST PROCEDURAL COMPLICATION [None]
  - REFLUX OESOPHAGITIS [None]
  - UMBILICAL HERNIA [None]
